FAERS Safety Report 6191999-4 (Version None)
Quarter: 2009Q2

REPORT INFORMATION
  Report Type: 
  Country: None (occurrence: None)
  Receive Date: 20090515
  Receipt Date: 20090501
  Transmission Date: 20091009
  Serious: Yes (Death, Hospitalization)
  Sender: FDA-Public Use
  Company Number: B0571467A

PATIENT
  Sex: Female

DRUGS (12)
  1. SALBUTAMOL [Suspect]
     Indication: ASTHMA
     Route: 055
  2. METHADONE HCL [Concomitant]
  3. DIAZEPAM [Concomitant]
  4. NIFEDIPINE [Concomitant]
  5. CITALOPRAM HYDROBROMIDE [Concomitant]
     Dosage: 30MG PER DAY
  6. ACETAMINOPHEN [Concomitant]
     Indication: TOOTHACHE
  7. FLUTICASONE [Concomitant]
     Route: 055
  8. NICOTINE [Concomitant]
  9. VENTOLIN [Concomitant]
     Indication: ASTHMA
     Route: 055
  10. FLUOXETINE HCL [Concomitant]
     Indication: DEPRESSION
  11. FLUOXETINE HCL [Concomitant]
     Dosage: 20MG PER DAY
     Dates: end: 20080322
  12. ADALAT [Concomitant]
     Dosage: 20MG PER DAY

REACTIONS (1)
  - ASTHMA [None]
